FAERS Safety Report 5874756-5 (Version None)
Quarter: 2008Q3

REPORT INFORMATION
  Report Type: 
  Country: None (occurrence: None)
  Receive Date: 20080903
  Receipt Date: 20080822
  Transmission Date: 20090109
  Serious: Yes (Death)
  Sender: FDA-Public Use
  Company Number: 2008S1000261

PATIENT

DRUGS (1)
  1. CUBICIN [Suspect]

REACTIONS (1)
  - SEPTIC SHOCK [None]
